FAERS Safety Report 16853731 (Version 1)
Quarter: 2019Q3

REPORT INFORMATION
  Report Type: Spontaneous
  Country: US (occurrence: US)
  Receive Date: 20190802
  Receipt Date: 20190802
  Transmission Date: 20191005
  Serious: Yes (Hospitalization)
  Sender: FDA-Public Use
  Company Number: None

PATIENT
  Age: 64 Year
  Sex: Female

DRUGS (9)
  1. MONTELUKAST [Concomitant]
     Active Substance: MONTELUKAST SODIUM
  2. ALBUTEROL. [Concomitant]
     Active Substance: ALBUTEROL
  3. WARFARIN [Suspect]
     Active Substance: WARFARIN
     Indication: DEEP VEIN THROMBOSIS
     Route: 048
     Dates: start: 20180212, end: 20190503
  4. FLUTICASONE AND SALMETEROL [Concomitant]
     Active Substance: FLUTICASONE PROPIONATE\SALMETEROL XINAFOATE
  5. ENALAPRIL [Concomitant]
     Active Substance: ENALAPRIL
  6. FLUTICASONE. [Concomitant]
     Active Substance: FLUTICASONE
  7. ESOMEPRAZOLE. [Concomitant]
     Active Substance: ESOMEPRAZOLE MAGNESIUM
  8. ACETAMINOPHEN. [Concomitant]
     Active Substance: ACETAMINOPHEN
  9. FUROSEMIDE. [Concomitant]
     Active Substance: FUROSEMIDE

REACTIONS (7)
  - Headache [None]
  - Drug ineffective [None]
  - Subdural haematoma [None]
  - Vision blurred [None]
  - Therapy cessation [None]
  - Nausea [None]
  - Anticoagulation drug level above therapeutic [None]

NARRATIVE: CASE EVENT DATE: 20190503
